FAERS Safety Report 19892885 (Version 1)
Quarter: 2021Q3

REPORT INFORMATION
  Report Type: Spontaneous
  Country: US (occurrence: US)
  Receive Date: 20210929
  Receipt Date: 20210929
  Transmission Date: 20211014
  Serious: No
  Sender: FDA-Public Use
  Company Number: US-ELI_LILLY_AND_COMPANY-US202109000667

PATIENT
  Sex: Male

DRUGS (4)
  1. HUMULIN R U?500 [Suspect]
     Active Substance: INSULIN HUMAN
     Dosage: 85 U, UNKNOWN
     Route: 058
  2. HUMULIN R U?500 [Suspect]
     Active Substance: INSULIN HUMAN
     Indication: TYPE 2 DIABETES MELLITUS
     Dosage: 85 U, UNKNOWN
     Route: 058
     Dates: start: 201902
  3. HUMULIN R U?500 [Suspect]
     Active Substance: INSULIN HUMAN
     Indication: TYPE 2 DIABETES MELLITUS
     Dosage: 85 U, UNKNOWN
     Route: 058
     Dates: start: 201902
  4. HUMULIN R U?500 [Suspect]
     Active Substance: INSULIN HUMAN
     Dosage: 85 U, UNKNOWN
     Route: 058

REACTIONS (2)
  - Injection site pain [Unknown]
  - Accidental underdose [Unknown]
